FAERS Safety Report 8227700-X (Version None)
Quarter: 2012Q1

REPORT INFORMATION
  Report Type: 
  Country: None (occurrence: None)
  Receive Date: 20120322
  Receipt Date: 20120313
  Transmission Date: 20120608
  Serious: No
  Sender: FDA-Public Use
  Company Number: US-B.I. PHARMACEUTICALS,INC./RIDGEFIELD-2012-BP-04798BP

PATIENT
  Age: 53 Year
  Sex: Female

DRUGS (4)
  1. LEXAPRO [Concomitant]
     Indication: DEPRESSION
     Route: 048
  2. LEVOXYL [Concomitant]
     Indication: HYPOTHYROIDISM
     Route: 048
  3. OMEPRAZOLE [Concomitant]
     Indication: GASTROOESOPHAGEAL REFLUX DISEASE
     Route: 048
  4. SPIRIVA [Suspect]
     Indication: CHRONIC OBSTRUCTIVE PULMONARY DISEASE
     Dosage: 18 MCG
     Route: 055
     Dates: start: 20120307

REACTIONS (1)
  - GINGIVAL PAIN [None]
